FAERS Safety Report 17637980 (Version 1)
Quarter: 2020Q2

REPORT INFORMATION
  Report Type: Spontaneous
  Country: DE (occurrence: DE)
  Receive Date: 20200407
  Receipt Date: 20200407
  Transmission Date: 20200713
  Serious: Yes (Life-Threatening, Other)
  Sender: FDA-Public Use
  Company Number: DE-PFIZER INC-2020142625

PATIENT

DRUGS (1)
  1. CYTOTEC [Suspect]
     Active Substance: MISOPROSTOL
     Indication: LABOUR INDUCTION
     Dosage: UNK (DOSE UNKNOWN)
     Route: 064
     Dates: start: 20190506, end: 20190508

REACTIONS (2)
  - Foetal heart rate decreased [Unknown]
  - Foetal exposure during delivery [Unknown]
